FAERS Safety Report 4308366-8 (Version None)
Quarter: 2004Q1

REPORT INFORMATION
  Report Type: 
  Country: None (occurrence: None)
  Receive Date: 20040301
  Receipt Date: 20040220
  Transmission Date: 20041129
  Serious: Yes (Other)
  Sender: FDA-Public Use
  Company Number: BW-BRISTOL-MYERS SQUIBB COMPANY-12513024

PATIENT
  Age: 40 Year
  Sex: Female

DRUGS (3)
  1. EFAVIRENZ [Suspect]
     Indication: HIV INFECTION
     Dates: start: 20030903
  2. DIDANOSINE [Suspect]
     Indication: HIV INFECTION
     Dates: start: 20030903
  3. ZIDOVUDINE [Suspect]
     Indication: HIV INFECTION
     Dates: start: 20030903

REACTIONS (1)
  - ANAEMIA [None]
